FAERS Safety Report 6557107-2 (Version None)
Quarter: 2010Q1

REPORT INFORMATION
  Report Type: 
  Country: None (occurrence: None)
  Receive Date: 20100128
  Receipt Date: 20100119
  Transmission Date: 20100710
  Serious: Yes (Hospitalization)
  Sender: FDA-Public Use
  Company Number: DE-AMGEN-US387214

PATIENT
  Sex: Female
  Weight: 27.5 kg

DRUGS (1)
  1. ENBREL [Suspect]
     Indication: JUVENILE ARTHRITIS
     Route: 058
     Dates: start: 20080509

REACTIONS (4)
  - ERYTHEMA NODOSUM [None]
  - HIDRADENITIS [None]
  - SKIN DISORDER [None]
  - VASCULITIS [None]
